FAERS Safety Report 21593722 (Version 1)
Quarter: 2022Q4

REPORT INFORMATION
  Report Type: Spontaneous
  Country: US (occurrence: None)
  Receive Date: 20221114
  Receipt Date: 20221114
  Transmission Date: 20230113
  Serious: No
  Sender: FDA-Public Use
  Company Number: None

PATIENT
  Sex: Male

DRUGS (1)
  1. SUTENT [Suspect]
     Active Substance: SUNITINIB MALATE
     Indication: Renal cancer
     Dosage: FREQUENCY: TAKE 1 CAPSULE (25MG) BY MOUTH ONCE DAILY AT THE SAME TIME FOR 2 WEEKS ON, THEN 1 WEEK OF
     Route: 048
     Dates: start: 20180301

REACTIONS (1)
  - Drug ineffective [None]
